FAERS Safety Report 11339494 (Version 3)
Quarter: 2015Q3

REPORT INFORMATION
  Report Type: Spontaneous
  Country: CN (occurrence: CN)
  Receive Date: 20150805
  Receipt Date: 20150818
  Transmission Date: 20151125
  Serious: Yes (Other)
  Sender: FDA-Public Use
  Company Number: CN-ROCHE-1607411

PATIENT
  Age: 52 Year
  Sex: Male
  Weight: 60 kg

DRUGS (26)
  1. DIPHENHYDRAMINE. [Concomitant]
     Active Substance: DIPHENHYDRAMINE
     Dosage: DAY 1
     Route: 065
     Dates: start: 20150611
  2. MABTHERA [Suspect]
     Active Substance: RITUXIMAB
     Indication: DIFFUSE LARGE B-CELL LYMPHOMA
     Dosage: 500 MG / 50 ML OR 100 MG / 10 ML
     Route: 041
     Dates: start: 20150427
  3. MABTHERA [Suspect]
     Active Substance: RITUXIMAB
     Route: 042
     Dates: start: 20150611
  4. CYCLOPHOSPHAMIDE. [Suspect]
     Active Substance: CYCLOPHOSPHAMIDE
     Dosage: DAY 2
     Route: 065
     Dates: start: 20150611
  5. PREDNISONE. [Suspect]
     Active Substance: PREDNISONE
     Dosage: DAY 2-6
     Route: 048
     Dates: start: 20150707
  6. DEXAMETHASONE. [Concomitant]
     Active Substance: DEXAMETHASONE
     Route: 065
  7. VINCRISTINE [Suspect]
     Active Substance: VINCRISTINE
     Dosage: DAY 2
     Route: 065
     Dates: start: 20150707
  8. PREDNISONE. [Suspect]
     Active Substance: PREDNISONE
     Indication: DIFFUSE LARGE B-CELL LYMPHOMA
     Dosage: DAY 1-5
     Route: 048
     Dates: start: 20150421
  9. EPIRUBICIN [Suspect]
     Active Substance: EPIRUBICIN
     Indication: PRODUCT USED FOR UNKNOWN INDICATION
     Route: 065
     Dates: start: 20150428
  10. CYCLOPHOSPHAMIDE. [Suspect]
     Active Substance: CYCLOPHOSPHAMIDE
     Dosage: DAY 2
     Route: 065
     Dates: start: 20150519
  11. VINCRISTINE [Suspect]
     Active Substance: VINCRISTINE
     Dosage: DAY 2
     Route: 065
     Dates: start: 20150611
  12. EPIRUBICIN [Suspect]
     Active Substance: EPIRUBICIN
     Dosage: DAY 2
     Route: 065
     Dates: start: 20150707
  13. EPIRUBICIN [Suspect]
     Active Substance: EPIRUBICIN
     Dosage: DAY 2
     Route: 065
     Dates: start: 20150611
  14. DIPHENHYDRAMINE. [Concomitant]
     Active Substance: DIPHENHYDRAMINE
     Dosage: DAY 1
     Route: 030
     Dates: start: 20150519
  15. MABTHERA [Suspect]
     Active Substance: RITUXIMAB
     Indication: NON-HODGKIN^S LYMPHOMA
     Route: 042
     Dates: start: 20150519
  16. DOXORUBICIN [Concomitant]
     Active Substance: DOXORUBICIN
     Indication: DIFFUSE LARGE B-CELL LYMPHOMA
     Route: 065
     Dates: start: 201504
  17. PREDNISONE. [Suspect]
     Active Substance: PREDNISONE
     Dosage: DAY 2-6
     Route: 048
     Dates: start: 20150519
  18. CYCLOPHOSPHAMIDE. [Suspect]
     Active Substance: CYCLOPHOSPHAMIDE
     Dosage: DAY 2
     Route: 065
     Dates: start: 20150707
  19. VINCRISTINE [Suspect]
     Active Substance: VINCRISTINE
     Indication: DIFFUSE LARGE B-CELL LYMPHOMA
     Dosage: DAY 2
     Route: 065
     Dates: start: 20150519
  20. DIPHENHYDRAMINE. [Concomitant]
     Active Substance: DIPHENHYDRAMINE
     Dosage: DAY 1
     Route: 065
     Dates: start: 20150707
  21. MABTHERA [Suspect]
     Active Substance: RITUXIMAB
     Route: 042
     Dates: start: 20150707
  22. CYCLOPHOSPHAMIDE. [Suspect]
     Active Substance: CYCLOPHOSPHAMIDE
     Indication: DIFFUSE LARGE B-CELL LYMPHOMA
     Route: 065
     Dates: start: 20150428
  23. VINCRISTINE [Suspect]
     Active Substance: VINCRISTINE
     Indication: DIFFUSE LARGE B-CELL LYMPHOMA
     Dosage: DAY 1
     Route: 065
     Dates: start: 20150421
  24. PREDNISONE. [Suspect]
     Active Substance: PREDNISONE
     Dosage: DAY 2
     Route: 048
     Dates: start: 20150611
  25. EPIRUBICIN [Suspect]
     Active Substance: EPIRUBICIN
     Dosage: DAY 2
     Route: 065
     Dates: start: 20150519
  26. DIPHENHYDRAMINE. [Concomitant]
     Active Substance: DIPHENHYDRAMINE
     Indication: DIFFUSE LARGE B-CELL LYMPHOMA
     Route: 030
     Dates: start: 20150427

REACTIONS (10)
  - Nausea [Not Recovered/Not Resolved]
  - Asthenia [Not Recovered/Not Resolved]
  - Weight decreased [Not Recovered/Not Resolved]
  - White blood cell count decreased [Recovering/Resolving]
  - Ill-defined disorder [Not Recovered/Not Resolved]
  - Lymphadenopathy [Not Recovered/Not Resolved]
  - Drug ineffective [Unknown]
  - Metastases to lymph nodes [Not Recovered/Not Resolved]
  - Dysuria [Unknown]
  - Decreased appetite [Not Recovered/Not Resolved]

NARRATIVE: CASE EVENT DATE: 20150502
